FAERS Safety Report 11266138 (Version 1)
Quarter: 2015Q2

REPORT INFORMATION
  Report Type: Spontaneous
  Country: US (occurrence: None)
  Receive Date: 20150625
  Receipt Date: 20150625
  Transmission Date: 20150821
  Serious: No
  Sender: FDA-Public Use
  Company Number: PHEH2015US001955

PATIENT
  Age: 43 Year
  Sex: Male

DRUGS (1)
  1. ZYKADIA [Suspect]
     Active Substance: CERITINIB
     Indication: PRODUCT USED FOR UNKNOWN INDICATION
     Route: 048

REACTIONS (6)
  - Palpitations [None]
  - Hepatic enzyme increased [None]
  - Chest pain [None]
  - Nasopharyngitis [None]
  - Lung disorder [None]
  - Lymphadenopathy [None]
